FAERS Safety Report 8817859 (Version 1)
Quarter: 2012Q4

REPORT INFORMATION
  Report Type: 
  Country: MY (occurrence: MY)
  Receive Date: 20121004
  Receipt Date: 20121004
  Transmission Date: 20130627
  Serious: Yes (Other)
  Sender: FDA-Public Use
  Company Number: MY-ROCHE-1135949

PATIENT
  Age: 72 Year
  Sex: Female

DRUGS (2)
  1. KYTRIL [Suspect]
     Indication: NAUSEA
     Route: 042
  2. KYTRIL [Suspect]
     Indication: VOMITING

REACTIONS (3)
  - Periorbital oedema [Recovered/Resolved]
  - Pain [Recovered/Resolved]
  - Dyspnoea [Recovered/Resolved]
